FAERS Safety Report 13952753 (Version 1)
Quarter: 2017Q3

REPORT INFORMATION
  Report Type: Spontaneous
  Country: US (occurrence: US)
  Receive Date: 20170911
  Receipt Date: 20170911
  Transmission Date: 20171128
  Serious: No
  Sender: FDA-Public Use
  Company Number: US-TEVA-750752USA

PATIENT
  Sex: Female

DRUGS (1)
  1. FENTANYL TRANSDERMAL SYSTEM [Suspect]
     Active Substance: FENTANYL
     Indication: PAIN
     Route: 065
     Dates: start: 201510

REACTIONS (6)
  - Product substitution issue [Unknown]
  - Product use issue [None]
  - Application site erythema [Unknown]
  - Urticaria [Unknown]
  - Application site pain [Unknown]
  - Application site discomfort [Unknown]

NARRATIVE: CASE EVENT DATE: 2017
